FAERS Safety Report 15220684 (Version 1)
Quarter: 2018Q3

REPORT INFORMATION
  Report Type: Spontaneous
  Country: US (occurrence: US)
  Receive Date: 20180704
  Receipt Date: 20180704
  Transmission Date: 20181010
  Serious: Yes (Hospitalization, Other)
  Sender: FDA-Public Use
  Company Number: None

PATIENT
  Sex: Female

DRUGS (3)
  1. FUROSEMIDE 40MG [Concomitant]
     Active Substance: FUROSEMIDE
  2. SPIRINOLACTONE 100MG [Concomitant]
  3. ADCIRCA [Suspect]
     Active Substance: TADALAFIL
     Indication: PULMONARY ARTERIAL HYPERTENSION
     Route: 048
     Dates: start: 20171213

REACTIONS (3)
  - Oesophageal haemorrhage [None]
  - Drug dose omission [None]
  - Ulcer haemorrhage [None]
